FAERS Safety Report 20724818 (Version 1)
Quarter: 2022Q2

REPORT INFORMATION
  Report Type: Spontaneous
  Country: US (occurrence: US)
  Receive Date: 20220419
  Receipt Date: 20220419
  Transmission Date: 20220721
  Serious: Yes (Other)
  Sender: FDA-Public Use
  Company Number: US-RISINGPHARMA-US-2022RISLIT00399

PATIENT
  Age: 23 Year

DRUGS (2)
  1. TESTOSTERONE CYPIONATE [Suspect]
     Active Substance: TESTOSTERONE CYPIONATE
     Indication: Transgender hormonal therapy
     Route: 065
  2. NORTRIPTYLINE [Concomitant]
     Active Substance: NORTRIPTYLINE
     Indication: Supportive care
     Route: 065

REACTIONS (1)
  - Idiopathic intracranial hypertension [Recovering/Resolving]
